FAERS Safety Report 7353074-2 (Version None)
Quarter: 2011Q1

REPORT INFORMATION
  Report Type: 
  Country: None (occurrence: None)
  Receive Date: 20110315
  Receipt Date: 20110310
  Transmission Date: 20110831
  Serious: Yes (Hospitalization)
  Sender: FDA-Public Use
  Company Number: B0705297A

PATIENT
  Sex: Female

DRUGS (8)
  1. AUGMENTIN [Suspect]
     Indication: INFECTION PROPHYLAXIS
     Dosage: 1G THREE TIMES PER DAY
     Route: 048
     Dates: start: 20101216, end: 20110120
  2. ACETAMINOPHEN [Suspect]
     Dosage: 1G FOUR TIMES PER DAY
     Route: 048
     Dates: start: 20101216, end: 20110120
  3. DELURSAN [Concomitant]
     Route: 065
  4. AUGMENTIN '125' [Suspect]
     Indication: INFECTION PROPHYLAXIS
     Dosage: 1G THREE TIMES PER DAY
     Route: 042
     Dates: start: 20110120, end: 20110121
  5. LOVENOX [Suspect]
     Dosage: 4000IU PER DAY
     Route: 058
     Dates: start: 20101216, end: 20110121
  6. ZELITREX [Concomitant]
     Route: 065
  7. PERFALGAN [Suspect]
     Dosage: 1G PER DAY
     Route: 042
     Dates: start: 20110120, end: 20110121
  8. ACUPAN [Concomitant]
     Route: 065
     Dates: start: 20101216

REACTIONS (2)
  - HEPATIC ENZYME INCREASED [None]
  - PANCYTOPENIA [None]
